FAERS Safety Report 19195738 (Version 1)
Quarter: 2021Q2

REPORT INFORMATION
  Report Type: Spontaneous
  Country: CA (occurrence: CA)
  Receive Date: 20210429
  Receipt Date: 20210429
  Transmission Date: 20210717
  Serious: Yes (Life-Threatening, Hospitalization)
  Sender: FDA-Public Use
  Company Number: CA-PFIZER INC-2021455332

PATIENT
  Age: 65 Year
  Sex: Female
  Weight: 58 kg

DRUGS (8)
  1. METHOTREXATE SODIUM. [Suspect]
     Active Substance: METHOTREXATE SODIUM
     Indication: UNDIFFERENTIATED CONNECTIVE TISSUE DISEASE
     Dosage: 15 MG, ONCE WEEKLY
     Route: 048
  2. VITAMIN D [COLECALCIFEROL] [Concomitant]
     Active Substance: CHOLECALCIFEROL
  3. ZOLEDRONIC ACID [Concomitant]
     Active Substance: ZOLEDRONIC ACID
  4. ZOPICLONE [Concomitant]
     Active Substance: ZOPICLONE
  5. AMITRIPTYLINE [Concomitant]
     Active Substance: AMITRIPTYLINE
  6. RITUXIMAB. [Concomitant]
     Active Substance: RITUXIMAB
  7. CALCIUM [Concomitant]
     Active Substance: CALCIUM
  8. VENLAFAXINE XR [Concomitant]
     Active Substance: VENLAFAXINE HYDROCHLORIDE

REACTIONS (6)
  - Dyspnoea [Recovered/Resolved with Sequelae]
  - Dehydration [Recovered/Resolved with Sequelae]
  - Pulmonary fibrosis [Recovered/Resolved with Sequelae]
  - Pulmonary toxicity [Recovered/Resolved with Sequelae]
  - Lung opacity [Recovered/Resolved with Sequelae]
  - Oxygen saturation decreased [Recovered/Resolved with Sequelae]
